FAERS Safety Report 6287720-1 (Version None)
Quarter: 2009Q3

REPORT INFORMATION
  Report Type: 
  Country: None (occurrence: None)
  Receive Date: 20090727
  Receipt Date: 20090727
  Transmission Date: 20100115
  Serious: No
  Sender: FDA-Public Use
  Company Number: None

PATIENT
  Sex: Female

DRUGS (1)
  1. ZICAM GEL [Suspect]
     Indication: UPPER RESPIRATORY TRACT INFECTION
     Dosage: PRN, NASAL
     Route: 045
     Dates: start: 20070301, end: 20080101

REACTIONS (2)
  - AGEUSIA [None]
  - ANOSMIA [None]
